FAERS Safety Report 21364470 (Version 1)
Quarter: 2022Q3

REPORT INFORMATION
  Report Type: Spontaneous
  Country: US (occurrence: US)
  Receive Date: 20220922
  Receipt Date: 20220922
  Transmission Date: 20221027
  Serious: No
  Sender: FDA-Public Use
  Company Number: US-GLENMARK PHARMACEUTICALS-2022GMK073526

PATIENT

DRUGS (1)
  1. PIMECROLIMUS [Suspect]
     Active Substance: PIMECROLIMUS
     Indication: Skin irritation
     Dosage: UNK
     Route: 061

REACTIONS (3)
  - Dermatitis [Unknown]
  - Skin irritation [Unknown]
  - Condition aggravated [Unknown]
